FAERS Safety Report 6241682-1 (Version None)
Quarter: 2009Q2

REPORT INFORMATION
  Report Type: 
  Country: None (occurrence: None)
  Receive Date: 20090623
  Receipt Date: 20090611
  Transmission Date: 20091009
  Serious: Yes (Hospitalization)
  Sender: FDA-Public Use
  Company Number: US-ELI_LILLY_AND_COMPANY-US200608000499

PATIENT
  Sex: Male
  Weight: 75.736 kg

DRUGS (7)
  1. ZYPREXA [Suspect]
     Dosage: 2.5 MG, UNK
     Dates: start: 20010823, end: 20051101
  2. BUPROPION [Concomitant]
     Dosage: 150 MG, UNK
     Dates: start: 20010501, end: 20020201
  3. ADVICOR [Concomitant]
     Dosage: 1 D/F, UNK
  4. ZOCOR [Concomitant]
     Dates: start: 19990310
  5. RHINOCORT [Concomitant]
     Dates: start: 19990212
  6. FLUOXETINE HCL [Concomitant]
     Dates: start: 20011015
  7. METHYLPREDNISOLONE [Concomitant]
     Dates: start: 19990506

REACTIONS (2)
  - DIABETES MELLITUS [None]
  - STENT PLACEMENT [None]
